FAERS Safety Report 4690481-0 (Version None)
Quarter: 2005Q2

REPORT INFORMATION
  Report Type: 
  Country: None (occurrence: None)
  Receive Date: 20050615
  Receipt Date: 20050530
  Transmission Date: 20051028
  Serious: Yes (Hospitalization)
  Sender: FDA-Public Use
  Company Number: ITWYE702830MAY05

PATIENT
  Sex: Male

DRUGS (7)
  1. ENBREL [Suspect]
     Indication: RHEUMATOID ARTHRITIS
     Route: 058
     Dates: start: 20050401, end: 20050422
  2. NICIZINA [Suspect]
     Indication: TUBERCULOSIS
     Route: 048
     Dates: start: 20050401, end: 20050425
  3. BENADON [Suspect]
     Indication: TUBERCULOSIS
     Route: 048
     Dates: start: 20050401
  4. DEPO-MEDROL [Concomitant]
     Indication: PSORIATIC ARTHROPATHY
     Route: 048
     Dates: start: 20010101
  5. TENORMIN [Concomitant]
     Indication: HYPERTENSION
     Route: 048
     Dates: start: 20010101
  6. CARDURA [Concomitant]
     Indication: HYPERTENSION
     Route: 048
     Dates: start: 20010101
  7. ESOMEPRAZOLE [Concomitant]
     Route: 048
     Dates: start: 20010101

REACTIONS (5)
  - ANGIONEUROTIC OEDEMA [None]
  - STEVENS-JOHNSON SYNDROME [None]
  - THROAT TIGHTNESS [None]
  - THROMBOCYTOPENIA [None]
  - TOXIC EPIDERMAL NECROLYSIS [None]
